FAERS Safety Report 17268575 (Version 1)
Quarter: 2020Q1

REPORT INFORMATION
  Report Type: Spontaneous
  Country: US (occurrence: US)
  Receive Date: 20191223
  Receipt Date: 20191223
  Transmission Date: 20200409
  Serious: No
  Sender: FDA-Public Use
  Company Number: None

PATIENT
  Age: 38 Year
  Sex: Female

DRUGS (2)
  1. MAGIC LEAF OGKOSH 1000MG/3ML CBD VAPE CARTRIDGE [Suspect]
     Active Substance: CANNABIDIOL\DEVICE\HERBALS
  2. MAGIC LEAF STRAWBERRY 1000MG/3ML CBD VAPE CARTRIDGE [Suspect]
     Active Substance: CANNABIDIOL\DEVICE\HERBALS
     Indication: RESPIRATORY DISORDER
     Route: 055

REACTIONS (2)
  - Respiratory disorder [None]
  - Device use issue [None]
